FAERS Safety Report 15289561 (Version 2)
Quarter: 2018Q3

REPORT INFORMATION
  Report Type: Spontaneous
  Country: US (occurrence: US)
  Receive Date: 20180817
  Receipt Date: 20180910
  Transmission Date: 20181010
  Serious: Yes (Hospitalization)
  Sender: FDA-Public Use
  Company Number: US-PFIZER INC-2018261965

PATIENT
  Age: 79 Year
  Sex: Female

DRUGS (1)
  1. CHAPSTICK SUN DEFENSE [Suspect]
     Active Substance: OCTINOXATE\OCTISALATE\OCTOCRYLENE\OXYBENZONE\PETROLATUM
     Indication: PROPHYLAXIS AGAINST SOLAR RADIATION
     Dosage: UNK, SINGLE(ONLY USED ONCE)
     Dates: start: 201805

REACTIONS (2)
  - Lip blister [Recovered/Resolved]
  - Rash erythematous [Recovered/Resolved]

NARRATIVE: CASE EVENT DATE: 2018
